FAERS Safety Report 15768193 (Version 1)
Quarter: 2018Q4

REPORT INFORMATION
  Report Type: Spontaneous
  Country: US (occurrence: US)
  Receive Date: 20181227
  Receipt Date: 20181227
  Transmission Date: 20190205
  Serious: No
  Sender: FDA-Public Use
  Company Number: US-009507513-1811USA011581

PATIENT
  Age: 54 Year
  Sex: Female

DRUGS (2)
  1. CAPECITABINE. [Concomitant]
     Active Substance: CAPECITABINE
  2. TEMODAR [Suspect]
     Active Substance: TEMOZOLOMIDE
     Route: 048

REACTIONS (1)
  - Product use in unapproved indication [Unknown]
